FAERS Safety Report 24079096 (Version 1)
Quarter: 2024Q3

REPORT INFORMATION
  Report Type: Spontaneous
  Country: US (occurrence: US)
  Receive Date: 20240711
  Receipt Date: 20240711
  Transmission Date: 20241017
  Serious: Yes (Hospitalization, Other)
  Sender: PFIZER
  Company Number: US-PFIZER INC-PV202400089048

PATIENT
  Age: 44 Year
  Sex: Female
  Weight: 104 kg

DRUGS (2)
  1. EPINEPHRINE [Suspect]
     Active Substance: EPINEPHRINE
     Indication: Epidural anaesthesia
     Dosage: 15 UG (FINAL CONCENTRATION 1/200000) WAS INJECTED OVER 15 SECONDS
  2. BUPIVACAINE [Suspect]
     Active Substance: BUPIVACAINE
     Indication: Epidural anaesthesia
     Dosage: 3 ML

REACTIONS (2)
  - Blood pressure decreased [Recovered/Resolved]
  - Off label use [Unknown]
